FAERS Safety Report 5163814-9 (Version None)
Quarter: 2006Q4

REPORT INFORMATION
  Report Type: 
  Country: None (occurrence: None)
  Receive Date: 20061122
  Receipt Date: 20061031
  Transmission Date: 20070319
  Serious: No
  Sender: FDA-Public Use
  Company Number: US200610003154

PATIENT
  Sex: Female

DRUGS (2)
  1. HUMALOG MIX 75/25 [Suspect]
     Indication: DIABETES MELLITUS
     Dosage: 16 UNITS IN AM, 26 UNITS IN PM, UNK - SEE IMAGE
  2. HUMALOG MIX 25L / 75NL  PEN - DISPOSABLE [Concomitant]

REACTIONS (4)
  - BLINDNESS [None]
  - DIABETIC RETINOPATHY [None]
  - MEMORY IMPAIRMENT [None]
  - PHARMACEUTICAL PRODUCT COMPLAINT [None]
